FAERS Safety Report 6253378-0 (Version None)
Quarter: 2009Q3

REPORT INFORMATION
  Report Type: 
  Country: None (occurrence: None)
  Receive Date: 20090701
  Receipt Date: 20090619
  Transmission Date: 20100115
  Serious: Yes (Other)
  Sender: FDA-Public Use
  Company Number: PHHY2009MX24892

PATIENT
  Age: 82 Year
  Sex: Female

DRUGS (1)
  1. EXFORGE [Suspect]
     Indication: HYPERTENSION
     Dosage: 1 TABLET (160/10 MG) PER DAY
     Route: 048
     Dates: start: 20081201

REACTIONS (3)
  - DEPRESSION [None]
  - HYPERGLYCAEMIA [None]
  - SKIN ULCER [None]
